FAERS Safety Report 23379996 (Version 1)
Quarter: 2024Q1

REPORT INFORMATION
  Report Type: Spontaneous
  Country: US (occurrence: US)
  Receive Date: 20240109
  Receipt Date: 20240109
  Transmission Date: 20240410
  Serious: Yes (Hospitalization, Other)
  Sender: FDA-Public Use
  Company Number: US-PROCTER+GAMBLE-PH23011621

PATIENT
  Age: 45 Year
  Sex: Female

DRUGS (5)
  1. DOXYLAMINE SUCCINATE [Suspect]
     Active Substance: DOXYLAMINE SUCCINATE
     Dosage: UNK
  2. DEXTROMETHORPHAN [Concomitant]
     Active Substance: DEXTROMETHORPHAN
     Indication: Depression
     Dosage: 45 MILLIGRAM, 2 /DAY
  3. BUPROPION [Concomitant]
     Active Substance: BUPROPION
     Indication: Depression
     Dosage: 105 MILLIGRAM, 2 /DAY
  4. ARIPIPRAZOLE [Concomitant]
     Active Substance: ARIPIPRAZOLE
     Indication: Depression
     Dosage: 5 MG/D (TAKEN FOR 3 MONTHS)
     Dates: start: 202309
  5. NORTRIPTYLINE [Concomitant]
     Active Substance: NORTRIPTYLINE
     Dosage: 50 MG/D AT NIGHT

REACTIONS (6)
  - Suicide attempt [Unknown]
  - Anhedonia [Unknown]
  - Feeling of despair [Unknown]
  - Hypersomnia [Unknown]
  - Condition aggravated [Unknown]
  - Intentional overdose [Unknown]
